FAERS Safety Report 14289493 (Version 1)
Quarter: 2017Q4

REPORT INFORMATION
  Report Type: Spontaneous
  Country: US (occurrence: None)
  Receive Date: 20171214
  Receipt Date: 20171214
  Transmission Date: 20180321
  Serious: No
  Sender: FDA-Public Use
  Company Number: None

PATIENT
  Age: 49 Year
  Sex: Female

DRUGS (1)
  1. IBRANCE [Suspect]
     Active Substance: PALBOCICLIB
     Indication: METASTASES TO BREAST
     Dosage: 125MG X 21 DAYS ORAL
     Route: 048
     Dates: start: 20171129, end: 20171213

REACTIONS (1)
  - Mucosal inflammation [None]

NARRATIVE: CASE EVENT DATE: 20171213
